FAERS Safety Report 9683960 (Version 1)
Quarter: 2013Q4

REPORT INFORMATION
  Report Type: Spontaneous
  Country: US (occurrence: None)
  Receive Date: 20131111
  Receipt Date: 20131111
  Transmission Date: 20140711
  Serious: No
  Sender: FDA-Public Use
  Company Number: None

PATIENT
  Age: 9 Year
  Sex: Male
  Weight: 24.04 kg

DRUGS (1)
  1. METHYLPHENIDATE ER [Suspect]
     Indication: ATTENTION DEFICIT/HYPERACTIVITY DISORDER
     Dosage: 1 PILL ONCE DAILY TAKEN BY MOUTH
     Dates: start: 20130916, end: 20131007

REACTIONS (6)
  - Anger [None]
  - Obsessive-compulsive disorder [None]
  - Product substitution issue [None]
  - Drug ineffective [None]
  - Product shape issue [None]
  - Product colour issue [None]
